FAERS Safety Report 21914757 (Version 3)
Quarter: 2023Q1

REPORT INFORMATION
  Report Type: Spontaneous
  Country: JP (occurrence: JP)
  Receive Date: 20230126
  Receipt Date: 20230302
  Transmission Date: 20230417
  Serious: Yes (Life-Threatening, Other)
  Sender: FDA-Public Use
  Company Number: JP-teijin-202300078_XE_P_1

PATIENT
  Age: 76 Year
  Sex: Female

DRUGS (9)
  1. XEOMIN [Suspect]
     Active Substance: INCOBOTULINUMTOXINA
     Indication: Muscle spasticity
     Route: 030
     Dates: start: 20220905, end: 20220905
  2. AMBROXOL HYDROCHLORIDE [Concomitant]
     Active Substance: AMBROXOL HYDROCHLORIDE
     Indication: Productive cough
     Dosage: 3 G
     Route: 048
  3. ENEVO [Concomitant]
     Indication: Nutritional supplementation
     Dosage: 750 ML (500 ML IN THE MORNING, 250 ML IN THE EVENING)
  4. Bio-three OD [Concomitant]
     Indication: Dysbiosis
     Dosage: 6 TABLETS
     Route: 048
  5. SODIUM CHLORIDE [Concomitant]
     Active Substance: SODIUM CHLORIDE
     Indication: Hyponatraemia
     Dosage: 3 G
     Route: 048
  6. MAGNESIUM OXIDE [Concomitant]
     Active Substance: MAGNESIUM OXIDE
     Dosage: 0.5 G
     Route: 048
  7. POTASSIUM CITRATE/SODIUM CITRATE HYDRATE [Concomitant]
     Indication: pH urine decreased
     Dosage: 8 TABLETS
     Route: 048
  8. ZINC [Concomitant]
     Active Substance: ZINC
     Indication: Hypozincaemia
     Dosage: 50 MG
     Route: 048
  9. TRICHLORMETHIAZIDE [Concomitant]
     Active Substance: TRICHLORMETHIAZIDE
     Indication: Hypertension
     Dosage: 1 MG
     Route: 048

REACTIONS (5)
  - Depressed level of consciousness [Recovered/Resolved]
  - Blood pressure decreased [Recovered/Resolved]
  - Cardiac murmur [Recovered/Resolved]
  - Troponin increased [Recovered/Resolved]
  - Blood creatine phosphokinase increased [Recovered/Resolved]

NARRATIVE: CASE EVENT DATE: 20221001
